FAERS Safety Report 6307502-1 (Version None)
Quarter: 2009Q3

REPORT INFORMATION
  Report Type: 
  Country: None (occurrence: None)
  Receive Date: 20090813
  Receipt Date: 20090807
  Transmission Date: 20100115
  Serious: Yes (Life-Threatening, Disabling)
  Sender: FDA-Public Use
  Company Number: US-JNJFOC-20090803187

PATIENT
  Sex: Female

DRUGS (2)
  1. TRINESSA [Suspect]
     Indication: MENSTRUAL DISORDER
     Route: 048
  2. HYDROCORTISONE [Concomitant]
     Indication: DRUG USE FOR UNKNOWN INDICATION
     Route: 065

REACTIONS (4)
  - CARDIAC ARREST [None]
  - HYPOXIC ENCEPHALOPATHY [None]
  - OFF LABEL USE [None]
  - SPINAL CORD INFARCTION [None]
